FAERS Safety Report 14328781 (Version 3)
Quarter: 2018Q1

REPORT INFORMATION
  Report Type: Report from Study
  Country: US (occurrence: US)
  Receive Date: 20171227
  Receipt Date: 20180305
  Transmission Date: 20180509
  Serious: Yes (Hospitalization)
  Sender: FDA-Public Use
  Company Number: US-ACTELION-A-US2017-161357

PATIENT
  Age: 52 Year
  Sex: Female
  Weight: 70.75 kg

DRUGS (13)
  1. OPSUMIT [Suspect]
     Active Substance: MACITENTAN
     Indication: PULMONARY HYPERTENSION
     Dosage: UNK
     Route: 048
  2. ALDACTONE [Concomitant]
     Active Substance: SPIRONOLACTONE
     Dosage: UNK
  3. PROTONIX [Concomitant]
     Active Substance: PANTOPRAZOLE SODIUM
     Dosage: UNK
  4. TYVASO [Concomitant]
     Active Substance: TREPROSTINIL
  5. PRILOSEC [Concomitant]
     Active Substance: OMEPRAZOLE MAGNESIUM
  6. VELETRI [Suspect]
     Active Substance: EPOPROSTENOL
     Indication: PULMONARY HYPERTENSION
     Dosage: 5 NG/KG, PER MIN
     Route: 042
     Dates: start: 201711
  7. REVATIO [Concomitant]
     Active Substance: SILDENAFIL CITRATE
  8. EVISTA [Concomitant]
     Active Substance: RALOXIFENE HYDROCHLORIDE
     Dosage: UNK
  9. BUMEX [Concomitant]
     Active Substance: BUMETANIDE
  10. CELLCEPT [Concomitant]
     Active Substance: MYCOPHENOLATE MOFETIL\MYCOPHENOLATE MOFETIL HYDROCHLORIDE
  11. AMLODIPINE [Concomitant]
     Active Substance: AMLODIPINE BESYLATE
  12. SYNTHROID [Concomitant]
     Active Substance: LEVOTHYROXINE SODIUM
  13. LIPITOR [Concomitant]
     Active Substance: ATORVASTATIN CALCIUM
     Dosage: UNK

REACTIONS (16)
  - Weight increased [Recovered/Resolved]
  - Headache [Unknown]
  - Dyspnoea [Recovered/Resolved]
  - Diarrhoea [Unknown]
  - Condition aggravated [Unknown]
  - Cough [Unknown]
  - Oedema [Unknown]
  - Catheter site pruritus [Recovering/Resolving]
  - Abdominal distension [Recovered/Resolved]
  - Nausea [Unknown]
  - Fluid retention [Recovered/Resolved]
  - Swelling [Recovered/Resolved]
  - Pleural effusion [Recovered/Resolved]
  - Chest discomfort [Unknown]
  - Catheter site inflammation [Recovering/Resolving]
  - Pain in jaw [Unknown]

NARRATIVE: CASE EVENT DATE: 20180106
